FAERS Safety Report 11897542 (Version 2)
Quarter: 2016Q1

REPORT INFORMATION
  Report Type: Spontaneous
  Country: US (occurrence: US)
  Receive Date: 20160108
  Receipt Date: 20160222
  Transmission Date: 20160526
  Serious: Yes (Other)
  Sender: FDA-Public Use
  Company Number: US-LEO PHARMA-239490

PATIENT
  Age: 66 Year
  Sex: Female

DRUGS (1)
  1. PICATO [Suspect]
     Active Substance: INGENOL MEBUTATE
     Indication: ACTINIC KERATOSIS
     Dates: start: 20160104, end: 20160104

REACTIONS (10)
  - Throat tightness [Recovered/Resolved]
  - Application site pain [Recovered/Resolved]
  - Incorrect dose administered [Unknown]
  - Throat irritation [Recovered/Resolved]
  - Hypersensitivity [Recovered/Resolved]
  - Blister [Recovered/Resolved]
  - Application site swelling [Recovered/Resolved]
  - Application site erythema [Recovering/Resolving]
  - Incorrect drug administration duration [Unknown]
  - Eye swelling [Recovered/Resolved]

NARRATIVE: CASE EVENT DATE: 20160104
